FAERS Safety Report 7739418-8 (Version None)
Quarter: 2011Q3

REPORT INFORMATION
  Report Type: 
  Country: None (occurrence: None)
  Receive Date: 20110909
  Receipt Date: 20110831
  Transmission Date: 20111222
  Serious: Yes (Life-Threatening, Hospitalization, Other)
  Sender: FDA-Public Use
  Company Number: AU-JNJFOC-20110901540

PATIENT
  Sex: Female

DRUGS (4)
  1. REMICADE [Suspect]
     Indication: COLITIS ULCERATIVE
     Route: 042
  2. MESALAMINE ENEMA [Concomitant]
     Route: 065
  3. COLAZIDE [Concomitant]
     Route: 065
  4. CORTICOSTEROIDS [Concomitant]
     Route: 065

REACTIONS (1)
  - MENINGITIS ASEPTIC [None]
